FAERS Safety Report 7961506 (Version 4)
Quarter: 2015Q2

REPORT INFORMATION
  Report Type: Spontaneous
  Country: US (occurrence: US)
  Receive Date: 20110526
  Receipt Date: 20150525
  Transmission Date: 20150821
  Serious: Yes (Hospitalization, Other)
  Sender: FDA-Public Use
  Company Number: US-JNJFOC-20110509263

PATIENT
  Sex: Female
  Weight: 97.34 kg

DRUGS (2)
  1. VANCOMYCIN [Suspect]
     Active Substance: VANCOMYCIN
     Indication: PRODUCT USED FOR UNKNOWN INDICATION
     Route: 065
  2. LEVAQUIN [Suspect]
     Active Substance: LEVOFLOXACIN
     Indication: LYMPHATIC DISORDER
     Route: 065
     Dates: start: 20100429

REACTIONS (4)
  - Pain in extremity [Unknown]
  - Stevens-Johnson syndrome [Recovering/Resolving]
  - Gait disturbance [Unknown]
  - Depression [Unknown]
